FAERS Safety Report 7500803-0 (Version None)
Quarter: 2011Q2

REPORT INFORMATION
  Report Type: 
  Country: None (occurrence: None)
  Receive Date: 20110524
  Receipt Date: 20110512
  Transmission Date: 20111010
  Serious: Yes (Hospitalization)
  Sender: FDA-Public Use
  Company Number: A0774388A

PATIENT
  Age: 41 Year
  Sex: Female
  Weight: 145.5 kg

DRUGS (2)
  1. AVANDAMET [Suspect]
     Route: 048
     Dates: start: 20041223, end: 20050103
  2. AVANDIA [Suspect]
     Route: 048
     Dates: start: 20040201, end: 20070501

REACTIONS (1)
  - CARDIAC FAILURE CONGESTIVE [None]
